FAERS Safety Report 6877129-1 (Version None)
Quarter: 2010Q3

REPORT INFORMATION
  Report Type: 
  Country: None (occurrence: None)
  Receive Date: 20100727
  Receipt Date: 20100727
  Transmission Date: 20110219
  Serious: Yes (Life-Threatening, Hospitalization)
  Sender: FDA-Public Use
  Company Number: None

PATIENT
  Age: 76 Year
  Sex: Male
  Weight: 109 kg

DRUGS (1)
  1. RASBURICASE 1.5 MG/VIAL [Suspect]
     Indication: BLOOD URIC ACID INCREASED
     Dosage: 6 MG ONCE IV
     Route: 042
     Dates: start: 20100513, end: 20100513

REACTIONS (2)
  - HYPOXIA [None]
  - METHAEMOGLOBINAEMIA [None]
